FAERS Safety Report 4510671-7 (Version None)
Quarter: 2004Q4

REPORT INFORMATION
  Report Type: 
  Country: None (occurrence: None)
  Receive Date: 20041025
  Receipt Date: 20030828
  Transmission Date: 20050328
  Serious: Yes (Other)
  Sender: FDA-Public Use
  Company Number: NSADSS2002038712

PATIENT
  Age: 67 Year
  Sex: Female
  Weight: 70.3075 kg

DRUGS (18)
  1. REMICADE [Suspect]
     Indication: RHEUMATOID ARTHRITIS
     Dosage: 3 MG/KG, 1 IN 1 AS NECESSARY, INTRAVENOUS DRIP
     Route: 041
     Dates: start: 20020905, end: 20020905
  2. REMICADE [Suspect]
     Indication: RHEUMATOID ARTHRITIS
     Dosage: 3 MG/KG, 1 IN 1 AS NECESSARY, INTRAVENOUS DRIP
     Route: 041
     Dates: start: 20020923, end: 20020923
  3. REMICADE [Suspect]
     Indication: RHEUMATOID ARTHRITIS
     Dosage: 3 MG/KG, 1 IN 1 AS NECESSARY, INTRAVENOUS DRIP
     Route: 041
     Dates: start: 20021022, end: 20021022
  4. REMICADE [Suspect]
     Indication: RHEUMATOID ARTHRITIS
     Dosage: 3 MG/KG, 1 IN 1 AS NECESSARY, INTRAVENOUS DRIP
     Route: 041
     Dates: start: 20021217, end: 20021217
  5. CELEBREX [Concomitant]
  6. ACTONEL [Concomitant]
  7. PREDNISONE [Concomitant]
  8. VALIUM [Concomitant]
  9. CORTISONE (CORTISONE) [Concomitant]
  10. ZOCOR [Concomitant]
  11. ATIVAN [Concomitant]
  12. ZYRTEC [Concomitant]
  13. ATIVAN [Concomitant]
  14. VICODIN [Concomitant]
  15. PROTONIX [Concomitant]
  16. REMERON [Concomitant]
  17. ARTHROTEC [Concomitant]
  18. PLAQUENIL [Concomitant]

REACTIONS (8)
  - ASTHENIA [None]
  - CONDITION AGGRAVATED [None]
  - FATIGUE [None]
  - HEADACHE [None]
  - HELICOBACTER INFECTION [None]
  - HOT FLUSH [None]
  - NAUSEA [None]
  - RASH [None]
